FAERS Safety Report 5583688-1 (Version None)
Quarter: 2008Q1

REPORT INFORMATION
  Report Type: 
  Country: None (occurrence: None)
  Receive Date: 20080102
  Receipt Date: 20071220
  Transmission Date: 20080703
  Serious: Yes (Hospitalization)
  Sender: FDA-Public Use
  Company Number: 2007BI024850

PATIENT
  Age: 60 Year
  Sex: Female

DRUGS (2)
  1. AVONEX [Suspect]
     Indication: MULTIPLE SCLEROSIS
     Dosage: 30 UG;QW;IM, 30 UG;QW;IM
     Route: 030
     Dates: start: 20010414, end: 20070901
  2. AVONEX [Suspect]
     Indication: MULTIPLE SCLEROSIS
     Dosage: 30 UG;QW;IM, 30 UG;QW;IM
     Route: 030
     Dates: start: 20071001

REACTIONS (6)
  - ARTHRITIS INFECTIVE [None]
  - CELLULITIS [None]
  - DISLOCATION OF JOINT PROSTHESIS [None]
  - MYCOSIS FUNGOIDES [None]
  - POSTOPERATIVE WOUND INFECTION [None]
  - STREPTOCOCCAL IDENTIFICATION TEST POSITIVE [None]
